FAERS Safety Report 5098477-4 (Version None)
Quarter: 2006Q3

REPORT INFORMATION
  Report Type: 
  Country: None (occurrence: None)
  Receive Date: 20060906
  Receipt Date: 20060130
  Transmission Date: 20061208
  Serious: No
  Sender: FDA-Public Use
  Company Number: US-GLAXOSMITHKLINE-A0591495A

PATIENT
  Age: 79 Year
  Sex: Female

DRUGS (4)
  1. REQUIP [Suspect]
     Indication: RESTLESS LEGS SYNDROME
     Dosage: 1MG TWICE PER DAY
     Route: 048
     Dates: start: 20050913
  2. METOPROLOL TARTRATE [Concomitant]
  3. LIPITOR [Concomitant]
  4. ASPIRIN [Concomitant]

REACTIONS (6)
  - DYSKINESIA [None]
  - HYPERTENSION [None]
  - MUSCLE SPASMS [None]
  - PHOTOPSIA [None]
  - RESTLESS LEGS SYNDROME [None]
  - WHITE BLOOD CELL COUNT INCREASED [None]
